FAERS Safety Report 12927066 (Version 1)
Quarter: 2016Q4

REPORT INFORMATION
  Report Type: Spontaneous
  Country: AU (occurrence: AU)
  Receive Date: 20161109
  Receipt Date: 20161109
  Transmission Date: 20170207
  Serious: Yes (Death, Other)
  Sender: FDA-Public Use
  Company Number: AU-MYLANLABS-2016M1047994

PATIENT

DRUGS (16)
  1. AMITRIPTYLINE [Suspect]
     Active Substance: AMITRIPTYLINE
     Indication: DEPRESSION
  2. OXYCODONE [Suspect]
     Active Substance: OXYCODONE
     Indication: HEADACHE
  3. MERSYNDOL                          /01137701/ [Suspect]
     Active Substance: ACETAMINOPHEN\CODEINE\DOXYLAMINE SUCCINATE
     Indication: BACK PAIN
  4. MORPHINE [Suspect]
     Active Substance: MORPHINE
     Indication: BACK PAIN
  5. MERSYNDOL                          /01137701/ [Suspect]
     Active Substance: ACETAMINOPHEN\CODEINE\DOXYLAMINE SUCCINATE
     Indication: HEADACHE
  6. OXYCODONE [Suspect]
     Active Substance: OXYCODONE
     Indication: BACK PAIN
  7. MERSYNDOL /01137701/ [Suspect]
     Active Substance: ACETAMINOPHEN\CODEINE\DOXYLAMINE SUCCINATE
     Indication: PAIN IN EXTREMITY
     Dosage: UNK
     Dates: start: 2003
  8. TARGIN [Suspect]
     Active Substance: NALOXONE HYDROCHLORIDE\OXYCODONE HYDROCHLORIDE
     Indication: PRODUCT USED FOR UNKNOWN INDICATION
     Dosage: UNK
  9. LAMOTRIGINE. [Suspect]
     Active Substance: LAMOTRIGINE
     Indication: PRODUCT USED FOR UNKNOWN INDICATION
     Dosage: UNK
  10. AMITRIPTYLINE [Suspect]
     Active Substance: AMITRIPTYLINE
     Indication: ANXIETY
     Dosage: 25MG AND 50MG STRENGTH
     Dates: start: 200710
  11. MORPHINE [Suspect]
     Active Substance: MORPHINE
     Indication: HEADACHE
  12. ALPRAZOLAM. [Suspect]
     Active Substance: ALPRAZOLAM
     Indication: PRODUCT USED FOR UNKNOWN INDICATION
     Dosage: AVERAGE 15 TABLETS PER DAY, 0.5MG, 1 MG AND 2 MG STRENGTHS
     Dates: start: 2003
  13. DIAZEPAM. [Suspect]
     Active Substance: DIAZEPAM
     Indication: PRODUCT USED FOR UNKNOWN INDICATION
     Dosage: UNK
  14. OXYCODONE [Suspect]
     Active Substance: OXYCODONE
     Indication: PAIN IN EXTREMITY
     Dosage: UNK
     Dates: start: 200712
  15. GABAPENTIN. [Suspect]
     Active Substance: GABAPENTIN
     Indication: PRODUCT USED FOR UNKNOWN INDICATION
     Dosage: UNK
  16. MORPHINE [Suspect]
     Active Substance: MORPHINE
     Indication: PAIN IN EXTREMITY

REACTIONS (9)
  - Drug dependence [Unknown]
  - Cerebrovascular accident [Unknown]
  - Intentional overdose [Fatal]
  - Toxicity to various agents [Fatal]
  - Drug abuse [Unknown]
  - Myocarditis [Unknown]
  - Completed suicide [Fatal]
  - Intentional self-injury [Unknown]
  - Peripheral swelling [Unknown]

NARRATIVE: CASE EVENT DATE: 20130226
